FAERS Safety Report 5190413-5 (Version None)
Quarter: 2006Q4

REPORT INFORMATION
  Report Type: 
  Country: None (occurrence: None)
  Receive Date: 20061222
  Receipt Date: 20050930
  Transmission Date: 20070319
  Serious: Yes (Hospitalization, Other)
  Sender: FDA-Public Use
  Company Number: PHHO2005DE16006

PATIENT
  Age: 43 Year
  Sex: Female
  Weight: 75 kg

DRUGS (9)
  1. DECORTIN-H [Concomitant]
  2. CERTICAN [Suspect]
     Indication: LUNG TRANSPLANT
     Dosage: 0.75 MG, BID
     Dates: start: 20050419
  3. CERTICAN [Suspect]
     Dosage: 0.125 MG
  4. NEORAL [Suspect]
     Indication: LUNG TRANSPLANT
     Dosage: 100 MG, BID
  5. NEORAL [Suspect]
     Dosage: 30 MG, BID
  6. NEORAL [Suspect]
     Dosage: 25 MG
  7. SEMPERA [Interacting]
     Dates: start: 20050321
  8. COTRIM [Interacting]
     Dates: start: 20050323
  9. CIPROFLOXACIN [Interacting]

REACTIONS (9)
  - BLOOD CREATININE INCREASED [None]
  - DIARRHOEA [None]
  - DRUG INTERACTION [None]
  - FATIGUE [None]
  - IMMUNOSUPPRESSANT DRUG LEVEL INCREASED [None]
  - NAUSEA [None]
  - OEDEMA PERIPHERAL [None]
  - RENAL FAILURE [None]
  - RENAL IMPAIRMENT [None]
